FAERS Safety Report 6744225-9 (Version None)
Quarter: 2010Q2

REPORT INFORMATION
  Report Type: 
  Country: None (occurrence: None)
  Receive Date: 20100527
  Receipt Date: 20100519
  Transmission Date: 20101027
  Serious: Yes (Hospitalization)
  Sender: FDA-Public Use
  Company Number: US-SANOFI-AVENTIS-2010SA029129

PATIENT
  Age: 67 Year
  Sex: Female

DRUGS (3)
  1. MULTAQ [Suspect]
     Route: 065
     Dates: start: 20100101
  2. PRAVASTATIN [Suspect]
     Route: 065
     Dates: end: 20100501
  3. SIMVASTATIN [Concomitant]

REACTIONS (3)
  - PLEURAL EFFUSION [None]
  - PNEUMONIA [None]
  - RASH [None]
